FAERS Safety Report 18589545 (Version 2)
Quarter: 2021Q1

REPORT INFORMATION
  Report Type: Spontaneous
  Country: MT (occurrence: GB)
  Receive Date: 20201208
  Receipt Date: 20210203
  Transmission Date: 20210419
  Serious: Yes (Hospitalization)
  Sender: FDA-Public Use
  Company Number: MT-JNJFOC-20201207237

PATIENT
  Sex: Female

DRUGS (3)
  1. XEPLION [Suspect]
     Active Substance: PALIPERIDONE PALMITATE
  2. XEPLION [Suspect]
     Active Substance: PALIPERIDONE PALMITATE
  3. XEPLION [Suspect]
     Active Substance: PALIPERIDONE PALMITATE
     Indication: PRODUCT USED FOR UNKNOWN INDICATION
     Route: 030
     Dates: start: 20180724

REACTIONS (1)
  - Paralysis [Unknown]
